FAERS Safety Report 16594371 (Version 1)
Quarter: 2019Q3

REPORT INFORMATION
  Report Type: Other
  Country: US (occurrence: US)
  Receive Date: 20190718
  Receipt Date: 20190718
  Transmission Date: 20191004
  Serious: No
  Sender: FDA-Public Use
  Company Number: US-SWEDISH ORPHAN BIOVITRUM-2019US0048

PATIENT
  Sex: Female

DRUGS (4)
  1. HORIZANT [Concomitant]
     Active Substance: GABAPENTIN ENACARBIL
  2. TRAMADOL. [Concomitant]
     Active Substance: TRAMADOL
  3. ALLERGY MEDICATION [Concomitant]
     Active Substance: DIPHENHYDRAMINE HYDROCHLORIDE
  4. KINERET [Suspect]
     Active Substance: ANAKINRA
     Route: 058
     Dates: start: 20180515

REACTIONS (5)
  - Injection site pain [Recovering/Resolving]
  - Injection site discolouration [Recovering/Resolving]
  - Myalgia [Recovering/Resolving]
  - Pain [Unknown]
  - Burning sensation [Unknown]
